FAERS Safety Report 20828240 (Version 1)
Quarter: 2022Q2

REPORT INFORMATION
  Report Type: Spontaneous
  Country: US (occurrence: None)
  Receive Date: 20220513
  Receipt Date: 20220513
  Transmission Date: 20220720
  Serious: Yes (Other)
  Sender: FDA-Public Use
  Company Number: None

PATIENT
  Age: 52 Year
  Sex: Female
  Weight: 51.75 kg

DRUGS (5)
  1. PAXLOVID [Suspect]
     Active Substance: NIRMATRELVIR\RITONAVIR
     Indication: COVID-19 treatment
     Dosage: FREQUENCY : TWICE A DAY;?
     Route: 048
     Dates: start: 20220417, end: 20220422
  2. NIFEDIPINE [Concomitant]
     Active Substance: NIFEDIPINE
  3. SYNTHROID [Concomitant]
     Active Substance: LEVOTHYROXINE SODIUM
  4. Estradiol + Progesterone [Concomitant]
  5. VITAMINS [Concomitant]
     Active Substance: VITAMINS

REACTIONS (7)
  - Fatigue [None]
  - Constipation [None]
  - Muscular weakness [None]
  - Nasopharyngitis [None]
  - COVID-19 [None]
  - Rebound effect [None]
  - Cough [None]

NARRATIVE: CASE EVENT DATE: 20220429
